FAERS Safety Report 10050714 (Version 1)
Quarter: 2014Q2

REPORT INFORMATION
  Report Type: Spontaneous
  Country: US (occurrence: US)
  Receive Date: 20140401
  Receipt Date: 20140401
  Transmission Date: 20141212
  Serious: No
  Sender: FDA-Public Use
  Company Number: US-ASTRAZENECA-2013SE78005

PATIENT
  Sex: Female
  Weight: 108.9 kg

DRUGS (10)
  1. NEXIUM [Suspect]
     Route: 048
  2. PRILOSEC [Suspect]
     Route: 048
  3. PEPCID [Concomitant]
  4. PHENERGAN [Concomitant]
  5. AZOR [Concomitant]
  6. AMBIEN [Concomitant]
  7. GAS-X [Concomitant]
  8. ATIVAN [Concomitant]
  9. NYSTATIN [Concomitant]
  10. LIDOCAINE SWISH [Concomitant]

REACTIONS (10)
  - Arthropathy [Unknown]
  - Back pain [Unknown]
  - Dysphagia [Unknown]
  - Therapy cessation [Unknown]
  - Yellow skin [Unknown]
  - Pain [Unknown]
  - Peripheral swelling [Unknown]
  - Abdominal pain upper [Unknown]
  - Diarrhoea [Unknown]
  - Drug ineffective [Unknown]
